FAERS Safety Report 19691625 (Version 1)
Quarter: 2021Q3

REPORT INFORMATION
  Report Type: Spontaneous
  Country: CN (occurrence: CN)
  Receive Date: 20210812
  Receipt Date: 20210812
  Transmission Date: 20211014
  Serious: Yes (Other)
  Sender: FDA-Public Use
  Company Number: CN-009507513-2108CHN002493

PATIENT
  Age: 53 Year
  Sex: Male
  Weight: 68 kg

DRUGS (2)
  1. VORICONAZOLE. [Suspect]
     Active Substance: VORICONAZOLE
     Indication: INFECTION
     Dosage: 0.4 GRAM, THREE TIME PER DAY (TID)
     Route: 041
     Dates: start: 20210623, end: 20210625
  2. TIENAM [Suspect]
     Active Substance: CILASTATIN SODIUM\IMIPENEM
     Indication: INFECTION
     Dosage: 1 G (ALSO REPORTED AS 0.5 G), FOUR TIME PER DAY (QID)
     Route: 041
     Dates: start: 20210621, end: 20210626

REACTIONS (3)
  - Mental disorder [Recovering/Resolving]
  - Hallucinations, mixed [Recovering/Resolving]
  - Abnormal behaviour [Recovering/Resolving]

NARRATIVE: CASE EVENT DATE: 20210625
